FAERS Safety Report 4673815-2 (Version None)
Quarter: 2005Q2

REPORT INFORMATION
  Report Type: 
  Country: None (occurrence: None)
  Receive Date: 20050524
  Receipt Date: 20050505
  Transmission Date: 20051028
  Serious: Yes (Death, Other)
  Sender: FDA-Public Use
  Company Number: GBS050417033

PATIENT
  Age: 75 Year
  Sex: Male

DRUGS (5)
  1. FLUOXETINE [Suspect]
     Indication: DEPRESSION
     Dosage: 20 MG DAY
     Route: 048
     Dates: start: 20020630, end: 20020709
  2. PROPOFOL [Concomitant]
  3. ALFENTANIL [Concomitant]
  4. MIDAZOLAM [Concomitant]
  5. AMIODARONE [Concomitant]

REACTIONS (5)
  - ACUTE RESPIRATORY DISTRESS SYNDROME [None]
  - DEHYDRATION [None]
  - MULTI-ORGAN FAILURE [None]
  - PEMPHIGOID [None]
  - TOXIC EPIDERMAL NECROLYSIS [None]
